FAERS Safety Report 8808755 (Version 4)
Quarter: 2013Q1

REPORT INFORMATION
  Report Type: Spontaneous
  Country: US (occurrence: US)
  Receive Date: 20120926
  Receipt Date: 20130315
  Transmission Date: 20140127
  Serious: Yes (Hospitalization)
  Sender: FDA-Public Use
  Company Number: US-BAYER-2012-100064

PATIENT
  Age: 52 Year
  Sex: Female
  Weight: 68.03 kg

DRUGS (8)
  1. YAZ [Suspect]
     Indication: MENOPAUSAL SYMPTOMS
     Dosage: UNK
     Dates: start: 200604, end: 200907
  2. YASMIN [Suspect]
     Dosage: UNK
     Dates: start: 200604, end: 200907
  3. ANTIHYPERTENSIVES [Concomitant]
     Indication: HYPERTENSION
     Dosage: UNK
     Dates: start: 1994
  4. WELLBUTRIN [Concomitant]
     Indication: MENOPAUSAL SYMPTOMS
     Dosage: UNK
     Dates: start: 2007
  5. TOPROL XL [Concomitant]
     Dosage: 50 MG, QD
  6. HYDROCHLOROTHIAZIDE [Concomitant]
     Dosage: 50 MG, QD
  7. OMEGA 3 [FISH OIL] [Concomitant]
  8. ZALEPLON [Concomitant]
     Dosage: 10 MG, UNK

REACTIONS (12)
  - Cerebrovascular accident [None]
  - Transient ischaemic attack [None]
  - Pain [None]
  - Injury [None]
  - General physical health deterioration [None]
  - Anxiety [None]
  - Anhedonia [None]
  - Emotional distress [None]
  - Pain [None]
  - Blindness [None]
  - Vertigo [None]
  - Muscular weakness [None]
